FAERS Safety Report 7041135-7 (Version None)
Quarter: 2010Q4

REPORT INFORMATION
  Report Type: 
  Country: None (occurrence: None)
  Receive Date: 20101013
  Receipt Date: 20101004
  Transmission Date: 20110411
  Serious: Yes (Hospitalization)
  Sender: FDA-Public Use
  Company Number: US-JNJFOC-20101001568

PATIENT
  Sex: Female
  Weight: 51.71 kg

DRUGS (1)
  1. FENTANYL-100 [Suspect]
     Indication: TRIGEMINAL NEURALGIA
     Route: 062

REACTIONS (3)
  - DEVICE LEAKAGE [None]
  - FACIAL PAIN [None]
  - NONSPECIFIC REACTION [None]
